FAERS Safety Report 6251648-3 (Version None)
Quarter: 2009Q2

REPORT INFORMATION
  Report Type: 
  Country: None (occurrence: None)
  Receive Date: 20090630
  Receipt Date: 20090618
  Transmission Date: 20091009
  Serious: Yes (Hospitalization, Other)
  Sender: FDA-Public Use
  Company Number: US-PFIZER INC-2009230498

PATIENT
  Sex: Male
  Weight: 83.914 kg

DRUGS (8)
  1. LIPITOR [Suspect]
     Indication: MYOCARDIAL INFARCTION
     Dosage: 40 MG, 1X/DAY
     Route: 048
     Dates: start: 20090330
  2. LOPRESSOR [Suspect]
     Dosage: 100 MG, UNK
  3. VASOTEC [Concomitant]
     Dosage: 5 MG, 2X/DAY
  4. PLAVIX [Concomitant]
     Dosage: 75 MG, UNK
  5. ACETYLSALICYLIC ACID [Concomitant]
     Dosage: 325 MG, UNK
  6. FISH OIL [Concomitant]
     Dosage: UNK
  7. ANTIDIARRHOEAL MICROORGANISMS [Concomitant]
     Dosage: UNK
  8. COENZYME Q10 [Concomitant]
     Dosage: 200 MG, UNK

REACTIONS (4)
  - CARDIAC DISORDER [None]
  - HEART RATE DECREASED [None]
  - HIGH DENSITY LIPOPROTEIN DECREASED [None]
  - STENT-GRAFT MALFUNCTION [None]
